FAERS Safety Report 8727144 (Version 2)
Quarter: 2012Q4

REPORT INFORMATION
  Report Type: 
  Country: US (occurrence: US)
  Receive Date: 20120816
  Receipt Date: 20120907
  Transmission Date: 20130627
  Serious: No
  Sender: FDA-Public Use
  Company Number: US-ASTRAZENECA-2012SE55734

PATIENT
  Sex: Female
  Weight: 60.3 kg

DRUGS (3)
  1. SEROQUEL [Suspect]
     Indication: BIPOLAR DISORDER
     Route: 048
  2. SEROQUEL [Suspect]
     Indication: BIPOLAR DISORDER
     Route: 048
  3. CAMPRAL [Concomitant]

REACTIONS (7)
  - Hepatitis C [Unknown]
  - Abdominal distension [Unknown]
  - Pulmonary mass [Unknown]
  - Sleep disorder [Unknown]
  - Ulcer [Unknown]
  - Bipolar disorder [Unknown]
  - Drug dose omission [Unknown]
